FAERS Safety Report 10577157 (Version 2)
Quarter: 2014Q4

REPORT INFORMATION
  Report Type: Spontaneous
  Country: BR (occurrence: BR)
  Receive Date: 20141111
  Receipt Date: 20141111
  Transmission Date: 20150529
  Serious: Yes (Hospitalization)
  Sender: FDA-Public Use
  Company Number: BR-PFIZER INC-2014202422

PATIENT
  Age: 54 Year
  Sex: Male

DRUGS (1)
  1. SUTENT [Suspect]
     Active Substance: SUNITINIB MALATE
     Indication: RENAL CELL CARCINOMA
     Dosage: 50 MG CYCLIC (SCHEME 4X2, CONTINUOUS)
     Route: 048
     Dates: start: 20140530, end: 20141016

REACTIONS (10)
  - Aggression [Not Recovered/Not Resolved]
  - Skin haemorrhage [Unknown]
  - Gastrointestinal necrosis [Unknown]
  - Hyperaesthesia [Unknown]
  - Mouth haemorrhage [Unknown]
  - Nervousness [Unknown]
  - Disease progression [Not Recovered/Not Resolved]
  - Dysgeusia [Not Recovered/Not Resolved]
  - Pruritus [Unknown]
  - Renal cell carcinoma [Not Recovered/Not Resolved]

NARRATIVE: CASE EVENT DATE: 2014
